FAERS Safety Report 6500069-4 (Version None)
Quarter: 2009Q4

REPORT INFORMATION
  Report Type: 
  Country: None (occurrence: None)
  Receive Date: 20091216
  Receipt Date: 20091207
  Transmission Date: 20100525
  Serious: No
  Sender: FDA-Public Use
  Company Number: JP-JNJFOC-20091201516

PATIENT
  Age: 66 Year
  Sex: Male

DRUGS (2)
  1. DUROTEP MT [Suspect]
     Indication: CANCER PAIN
     Dosage: 25UG/HR+100UG/HR=125UG/HR
     Route: 062
  2. OXINORM (OXYCODONE HYDROCHLORIDE) [Concomitant]
     Route: 048

REACTIONS (1)
  - INSOMNIA [None]
